FAERS Safety Report 8290076-6 (Version None)
Quarter: 2012Q1

REPORT INFORMATION
  Report Type: 
  Country: None (occurrence: None)
  Receive Date: 20120316
  Receipt Date: 20090910
  Transmission Date: 20120608
  Serious: Yes (Other)
  Sender: FDA-Public Use
  Company Number: PHEH2009US10756

PATIENT
  Sex: Female

DRUGS (6)
  1. LEVOTHYROXINE SODIUM [Concomitant]
  2. ATENOLOL [Concomitant]
  3. FOSAMAX [Concomitant]
  4. PROBIOTICS (MICROORGANISMS W/PROBIOTIC ACTION) (NO INGREDIENTS/SUBSTAN [Concomitant]
  5. TEKTURNA [Suspect]
     Dosage: 150 MG,
  6. GLYBURIDE [Concomitant]

REACTIONS (4)
  - FATIGUE [None]
  - BLOOD GLUCOSE ABNORMAL [None]
  - EYELID OEDEMA [None]
  - GINGIVAL DISORDER [None]
